FAERS Safety Report 16442969 (Version 1)
Quarter: 2019Q2

REPORT INFORMATION
  Report Type: Spontaneous
  Country: IL (occurrence: IL)
  Receive Date: 20190617
  Receipt Date: 20190617
  Transmission Date: 20190711
  Serious: Yes (Other)
  Sender: FDA-Public Use
  Company Number: PHHY2019IL136689

PATIENT
  Age: 55 Year
  Sex: Female

DRUGS (1)
  1. HYDROXYCHLOROQUINE SULPHATE [Suspect]
     Active Substance: HYDROXYCHLOROQUINE
     Indication: ORAL LICHEN PLANUS
     Dosage: 400 MG, QD
     Route: 048

REACTIONS (3)
  - Renal function test abnormal [Unknown]
  - Product use in unapproved indication [Unknown]
  - Drug ineffective [Unknown]
